FAERS Safety Report 8974424 (Version 1)
Quarter: 2012Q4

REPORT INFORMATION
  Report Type: Spontaneous
  Country: FR (occurrence: None)
  Receive Date: 20121213
  Receipt Date: 20121213
  Transmission Date: 20130627
  Serious: Yes (Other)
  Sender: FDA-Public Use
  Company Number: 2012P1066517

PATIENT
  Age: 51 Year
  Sex: Female

DRUGS (1)
  1. INFUMORPH [Suspect]

REACTIONS (11)
  - Withdrawal syndrome [None]
  - Mental status changes [None]
  - Cognitive disorder [None]
  - Pain [None]
  - Hyperhidrosis [None]
  - Drug effect decreased [None]
  - Underdose [None]
  - Device occlusion [None]
  - Off label use [None]
  - Wrong technique in drug usage process [None]
  - Device failure [None]
